FAERS Safety Report 24295588 (Version 1)
Quarter: 2024Q3

REPORT INFORMATION
  Report Type: Spontaneous
  Country: US (occurrence: US)
  Receive Date: 20240908
  Receipt Date: 20240908
  Transmission Date: 20241016
  Serious: No
  Sender: DR REDDYS
  Company Number: US-DRL-USA-SPO/USA/24/0012865

PATIENT
  Sex: Female

DRUGS (2)
  1. DOXYCYCLINE [Suspect]
     Active Substance: DOXYCYCLINE\DOXYCYCLINE HYCLATE
     Indication: Dermatitis acneiform
     Route: 048
  2. ISOTRETINOIN [Suspect]
     Active Substance: ISOTRETINOIN
     Indication: Dermatitis acneiform
     Dosage: 0.2-0.3 MG/KG/DAY
     Route: 048

REACTIONS (4)
  - Therapeutic product effect incomplete [Unknown]
  - Rebound effect [Unknown]
  - Xerosis [Unknown]
  - Product use in unapproved indication [Unknown]
